FAERS Safety Report 8181838-4 (Version None)
Quarter: 2012Q1

REPORT INFORMATION
  Report Type: 
  Country: None (occurrence: None)
  Receive Date: 20120302
  Receipt Date: 20120224
  Transmission Date: 20120608
  Serious: Yes (Death, Life-Threatening, Hospitalization, Disabling)
  Sender: FDA-Public Use
  Company Number: JP-ASTRAZENECA-2011SE77719

PATIENT
  Age: 13879 Day
  Sex: Female

DRUGS (34)
  1. SEROQUEL [Suspect]
     Indication: SCHIZOPHRENIA
     Route: 048
     Dates: start: 20070619, end: 20070628
  2. NITRAZEPAM [Suspect]
     Indication: INSOMNIA
     Route: 048
  3. CLARITHROMYCIN [Suspect]
     Indication: PNEUMONIA
     Route: 048
     Dates: start: 20070622, end: 20070628
  4. DEPAS [Suspect]
     Route: 065
  5. SEROQUEL [Suspect]
     Route: 048
  6. TEGRETOL [Suspect]
     Indication: SCHIZOPHRENIA
     Route: 048
     Dates: start: 20070620, end: 20070628
  7. TOLOPELON [Suspect]
     Indication: SCHIZOPHRENIA
     Route: 042
     Dates: start: 20070619, end: 20070628
  8. RILMAZAFONE HYDROCHLORIDE [Suspect]
     Route: 048
  9. HALOPERIDOL [Suspect]
     Indication: SCHIZOPHRENIA
     Route: 042
     Dates: start: 20070620, end: 20070628
  10. RISPERDAL [Suspect]
     Route: 048
     Dates: start: 20070619, end: 20070628
  11. PHENOBARBITAL TAB [Suspect]
     Indication: SCHIZOPHRENIA
     Route: 048
     Dates: start: 20070620, end: 20070628
  12. AKINETON [Suspect]
     Route: 065
  13. ZYPREXA [Suspect]
     Indication: SCHIZOPHRENIA
     Route: 048
     Dates: start: 20070619, end: 20070628
  14. PROMETHAZINE HCL [Suspect]
     Indication: SCHIZOPHRENIA
     Route: 048
  15. DORAL [Suspect]
     Indication: SCHIZOPHRENIA
     Route: 048
     Dates: start: 20070627, end: 20070628
  16. SENNOSIDE [Concomitant]
     Indication: CONSTIPATION
     Route: 048
     Dates: start: 20070626
  17. PANTOSIN [Concomitant]
     Indication: CONSTIPATION
     Route: 048
     Dates: start: 20070626
  18. RISPERDAL [Suspect]
     Indication: SCHIZOPHRENIA
     Route: 048
  19. PROMAZINE HYDROCHLORIDE [Suspect]
     Indication: SCHIZOPHRENIA
     Route: 048
     Dates: start: 20070623, end: 20070628
  20. NITRAZEPAM [Suspect]
     Route: 048
     Dates: start: 20070627, end: 20070628
  21. SOFMIN AMEL [Suspect]
     Indication: SCHIZOPHRENIA
     Route: 048
     Dates: start: 20070619, end: 20070628
  22. LODOPIN [Suspect]
     Indication: SCHIZOPHRENIA
     Route: 048
     Dates: start: 20070625, end: 20070628
  23. PROMETHAZINE HCL [Suspect]
     Route: 048
     Dates: start: 20070619, end: 20070628
  24. VALPROIC ACID [Suspect]
     Indication: SCHIZOPHRENIA
     Route: 048
     Dates: start: 20070625, end: 20070628
  25. LUVOX [Suspect]
     Route: 065
  26. ALPRAZOLAM [Suspect]
     Indication: ANXIETY
     Route: 065
  27. LAXOBERON [Concomitant]
     Indication: CONSTIPATION
     Route: 048
     Dates: start: 20070626
  28. CELMANIL [Suspect]
     Indication: SCHIZOPHRENIA
     Route: 048
     Dates: start: 20070619, end: 20070628
  29. LEVOTOMIN [Suspect]
     Route: 042
     Dates: start: 20070619, end: 20070628
  30. MAGNESIUM SULFATE [Concomitant]
     Indication: CONSTIPATION
     Route: 048
     Dates: start: 20070626
  31. MUCOTRON [Concomitant]
     Indication: PNEUMONIA
     Route: 048
     Dates: start: 20070622
  32. SLOWHEIM [Suspect]
     Indication: SCHIZOPHRENIA
     Route: 048
  33. SLOWHEIM [Suspect]
     Route: 048
     Dates: start: 20070627, end: 20070628
  34. LEVOTOMIN [Suspect]
     Indication: SCHIZOPHRENIA
     Route: 042

REACTIONS (5)
  - POSTRESUSCITATION ENCEPHALOPATHY [None]
  - ILEUS PARALYTIC [None]
  - SEPSIS [None]
  - MULTIPLE DRUG OVERDOSE [None]
  - CARDIO-RESPIRATORY ARREST [None]
